FAERS Safety Report 24926873 (Version 1)
Quarter: 2025Q1

REPORT INFORMATION
  Report Type: Spontaneous
  Country: US (occurrence: US)
  Receive Date: 20250205
  Receipt Date: 20250205
  Transmission Date: 20250409
  Serious: No
  Sender: ALEXION PHARMACEUTICALS
  Company Number: US-AstraZeneca-CH-00799379AP

PATIENT

DRUGS (1)
  1. BREZTRI [Suspect]
     Active Substance: BUDESONIDE\FORMOTEROL\GLYCOPYRROLATE
     Route: 065

REACTIONS (9)
  - COVID-19 [Unknown]
  - Cough [Unknown]
  - Illness [Unknown]
  - Poor quality device used [Unknown]
  - Device malfunction [Unknown]
  - Device use issue [Unknown]
  - Oropharyngeal discomfort [Unknown]
  - Blister [Unknown]
  - Discomfort [Unknown]
